FAERS Safety Report 9435787 (Version 2)
Quarter: 2013Q3

REPORT INFORMATION
  Report Type: Spontaneous
  Country: US (occurrence: US)
  Receive Date: 20130801
  Receipt Date: 20130926
  Transmission Date: 20140515
  Serious: No
  Sender: FDA-Public Use
  Company Number: US-B.I. PHARMACEUTICALS,INC./RIDGEFIELD-2013-BI-22037BP

PATIENT
  Age: 75 Year
  Sex: Female
  Weight: 61 kg

DRUGS (16)
  1. SPIRIVA [Suspect]
     Indication: CHRONIC OBSTRUCTIVE PULMONARY DISEASE
     Dosage: 18 MCG
     Route: 055
     Dates: start: 20130714, end: 20130722
  2. ADVAIR [Concomitant]
     Indication: CHRONIC OBSTRUCTIVE PULMONARY DISEASE
     Route: 055
     Dates: start: 201307
  3. ALBUTEROL [Concomitant]
     Indication: CHRONIC OBSTRUCTIVE PULMONARY DISEASE
     Route: 055
     Dates: start: 2008
  4. THIAMINE [Concomitant]
     Indication: ANAEMIA
     Dosage: 100 MG
     Route: 048
     Dates: start: 2010
  5. B12 INJECTION [Concomitant]
     Indication: ANAEMIA
     Route: 030
     Dates: start: 2010
  6. GABAPENTIN [Concomitant]
     Indication: NEUROPATHY PERIPHERAL
     Dosage: 1200 MG
     Route: 048
     Dates: start: 2010
  7. AMITRIPTYLINE [Concomitant]
     Indication: INSOMNIA
     Dates: start: 2012
  8. DIOVAN [Concomitant]
     Indication: HYPERTENSION
     Dosage: 320 MG
     Route: 048
     Dates: start: 2008
  9. DIAZEPAM [Concomitant]
     Indication: ANXIETY
     Dates: start: 1993
  10. NICOTINE PATCH [Concomitant]
     Indication: SMOKING CESSATION THERAPY
     Dosage: FORMULATION: PATCH
     Dates: start: 20130713
  11. PROAIR [Concomitant]
     Indication: CHRONIC OBSTRUCTIVE PULMONARY DISEASE
     Route: 055
     Dates: start: 2003
  12. LABATELOL [Concomitant]
     Indication: HYPERTENSION
     Dosage: 400 MG
     Route: 048
     Dates: start: 2008
  13. SIMVASTATIN [Concomitant]
     Indication: BLOOD CHOLESTEROL INCREASED
     Dosage: 80 MG
     Route: 048
     Dates: start: 2009
  14. FOLIC ACID [Concomitant]
     Indication: ANAEMIA
     Dosage: 1 MG
     Route: 048
     Dates: start: 2010
  15. CLOPIDIGREL [Concomitant]
     Indication: MYOCARDIAL INFARCTION
     Dosage: 75 MG
     Route: 048
     Dates: start: 2008
  16. NEBULIZER [Concomitant]
     Indication: CHRONIC OBSTRUCTIVE PULMONARY DISEASE
     Route: 055
     Dates: start: 2000

REACTIONS (11)
  - Lip swelling [Not Recovered/Not Resolved]
  - Swollen tongue [Not Recovered/Not Resolved]
  - Dysuria [Not Recovered/Not Resolved]
  - Joint swelling [Not Recovered/Not Resolved]
  - Local swelling [Not Recovered/Not Resolved]
  - Dry mouth [Not Recovered/Not Resolved]
  - Blood pressure increased [Not Recovered/Not Resolved]
  - Wheezing [Not Recovered/Not Resolved]
  - Cough [Not Recovered/Not Resolved]
  - Dyspnoea [Not Recovered/Not Resolved]
  - Product quality issue [Unknown]
